FAERS Safety Report 9197583 (Version 1)
Quarter: 2013Q1

REPORT INFORMATION
  Report Type: Spontaneous
  Country: JP (occurrence: JP)
  Receive Date: 20130328
  Receipt Date: 20130328
  Transmission Date: 20140127
  Serious: Yes (Other)
  Sender: FDA-Public Use
  Company Number: JP-GLAXOSMITHKLINE-B0878009A

PATIENT
  Sex: Male

DRUGS (2)
  1. SERETIDE (50MCG/250MCG) [Suspect]
     Indication: EMPHYSEMA
     Dosage: 250MCG TWICE PER DAY
     Route: 055
  2. SPIRIVA [Concomitant]
     Dosage: 1IUAX PER DAY
     Route: 055

REACTIONS (1)
  - Fungal oesophagitis [Unknown]
